FAERS Safety Report 4602961-4 (Version None)
Quarter: 2005Q1

REPORT INFORMATION
  Report Type: 
  Country: None (occurrence: None)
  Receive Date: 20050307
  Receipt Date: 20050214
  Transmission Date: 20050727
  Serious: Yes (Hospitalization)
  Sender: FDA-Public Use
  Company Number: B0371585A

PATIENT
  Age: 32 Year
  Sex: Male

DRUGS (1)
  1. VALACYCLOVIR HCL [Suspect]
     Dosage: 500 MG/ SEE DOSAGE TEXT/ ORAL
     Route: 048

REACTIONS (7)
  - ABDOMINAL PAIN [None]
  - BLOOD CREATININE INCREASED [None]
  - BLOOD UREA INCREASED [None]
  - HAEMODIALYSIS [None]
  - INTENTIONAL MISUSE [None]
  - RENAL IMPAIRMENT [None]
  - VOMITING [None]
